FAERS Safety Report 8989820 (Version 1)
Quarter: 2012Q4

REPORT INFORMATION
  Report Type: 
  Country: US (occurrence: US)
  Receive Date: 20121228
  Receipt Date: 20121228
  Transmission Date: 20130627
  Serious: Yes (Other)
  Sender: FDA-Public Use
  Company Number: US-JNJFOC-20121210898

PATIENT
  Age: 63 Year
  Sex: Female
  Weight: 73.5 kg

DRUGS (13)
  1. ACETAMINOPHEN [Suspect]
     Route: 065
  2. ACETAMINOPHEN [Suspect]
     Indication: PRODUCT USED FOR UNKNOWN INDICATION
     Route: 065
     Dates: start: 20090915
  3. TOCILIZUMAB [Suspect]
     Indication: RHEUMATOID ARTHRITIS
     Route: 042
     Dates: start: 20101216
  4. TOCILIZUMAB [Suspect]
     Indication: RHEUMATOID ARTHRITIS
     Route: 058
  5. PREDNISONE [Concomitant]
     Indication: RHEUMATOID ARTHRITIS
     Route: 048
     Dates: start: 20101014
  6. CALCIUM WITH VITAMIN D [Concomitant]
     Route: 065
  7. MULTIVITAMINS [Concomitant]
     Route: 065
  8. COMBIVENT INHALERS [Concomitant]
     Dosage: 1 puff
     Route: 048
  9. FISH OIL [Concomitant]
     Route: 048
  10. PRILOSEC [Concomitant]
     Route: 048
     Dates: start: 20091217
  11. IBUPROFEN [Concomitant]
     Route: 048
     Dates: start: 200609
  12. VOLTAREN [Concomitant]
     Route: 061
     Dates: start: 20100209
  13. ARAVA [Concomitant]
     Route: 048
     Dates: start: 20110119

REACTIONS (3)
  - Alanine aminotransferase increased [Recovered/Resolved]
  - Overdose [Recovered/Resolved]
  - Aspartate aminotransferase increased [Recovered/Resolved]
